FAERS Safety Report 18458703 (Version 1)
Quarter: 2020Q4

REPORT INFORMATION
  Report Type: Spontaneous
  Country: BR (occurrence: BR)
  Receive Date: 20201103
  Receipt Date: 20201103
  Transmission Date: 20210114
  Serious: Yes (Other)
  Sender: FDA-Public Use
  Company Number: BR-B.I. PHARMACEUTICALS,INC./RIDGEFIELD-2020-BI-057815

PATIENT
  Sex: Female

DRUGS (2)
  1. SPIRIVA RESPIMAT [Suspect]
     Active Substance: TIOTROPIUM BROMIDE
     Indication: BRONCHIAL DISORDER
  2. ALENIA [BUDESONIDE;FORMOTEROL FUMARATE] [Suspect]
     Active Substance: BUDESONIDE\FORMOTEROL FUMARATE
     Indication: BRONCHIAL DISORDER
     Dosage: STRENGTH: 12/400

REACTIONS (2)
  - Fatigue [Not Recovered/Not Resolved]
  - Breast cancer female [Unknown]
